FAERS Safety Report 20226635 (Version 1)
Quarter: 2021Q4

REPORT INFORMATION
  Report Type: Other
  Country: CN (occurrence: None)
  Receive Date: 20211224
  Receipt Date: 20211224
  Transmission Date: 20220304
  Serious: Yes (Other)
  Sender: FDA-Public Use
  Company Number: CN-ROCHE-2981271

PATIENT

DRUGS (5)
  1. BEVACIZUMAB [Suspect]
     Active Substance: BEVACIZUMAB
     Indication: Non-small cell lung cancer
     Dosage: FOR A MAXIMUM OF FOUR CYCLES
     Route: 065
  2. BEVACIZUMAB [Suspect]
     Active Substance: BEVACIZUMAB
     Dosage: MAINTENANCE THERAPY WAS REPEATED EVERY 3 WEEKS
     Route: 065
  3. PEMETREXED [Suspect]
     Active Substance: PEMETREXED
     Indication: Non-small cell lung cancer
     Dosage: FOR A MAXIMUM OF FOUR CYCLES AT A MAINTENANCE DOSE OF 500 MG/M2
     Route: 065
  4. CISPLATIN [Suspect]
     Active Substance: CISPLATIN
     Indication: Non-small cell lung cancer
     Dosage: FOR A MAXIMUM OF FOUR CYCLES
     Route: 065
  5. CARBOPLATIN [Suspect]
     Active Substance: CARBOPLATIN
     Indication: Non-small cell lung cancer
     Route: 065

REACTIONS (13)
  - Leukopenia [Unknown]
  - Thrombocytopenia [Unknown]
  - Vomiting [Unknown]
  - Hepatic function abnormal [Unknown]
  - Proteinuria [Unknown]
  - Hypertension [Unknown]
  - Fatigue [Unknown]
  - Nausea [Unknown]
  - Renal impairment [Unknown]
  - Anaemia [Unknown]
  - Haemoptysis [Unknown]
  - Abdominal pain [Unknown]
  - Oedema [Unknown]
